FAERS Safety Report 8103472-4 (Version None)
Quarter: 2012Q1

REPORT INFORMATION
  Report Type: 
  Country: None (occurrence: None)
  Receive Date: 20120201
  Receipt Date: 20120131
  Transmission Date: 20120608
  Serious: Yes (Other)
  Sender: FDA-Public Use
  Company Number: AU-ROCHE-1032043

PATIENT
  Sex: Male

DRUGS (7)
  1. ACTEMRA [Suspect]
     Indication: RHEUMATOID ARTHRITIS
     Dates: start: 20100301
  2. PREDNISOLONE [Concomitant]
  3. FOLIC ACID [Concomitant]
  4. METHOTREXATE [Concomitant]
  5. ACTONEL [Concomitant]
  6. CALCIUM NOS/VITAMIN D NOS [Concomitant]
  7. CARTIA (AUSTRALIA) [Concomitant]

REACTIONS (1)
  - CEREBROVASCULAR ACCIDENT [None]
